FAERS Safety Report 8341448-2 (Version None)
Quarter: 2012Q2

REPORT INFORMATION
  Report Type: 
  Country: None (occurrence: None)
  Receive Date: 20120507
  Receipt Date: 20120425
  Transmission Date: 20120825
  Serious: Yes (Hospitalization, Disabling)
  Sender: FDA-Public Use
  Company Number: US-MERCK-1203USA03342

PATIENT
  Age: 50 Year
  Sex: Female
  Weight: 68 kg

DRUGS (13)
  1. FOSAMAX [Suspect]
     Route: 048
     Dates: start: 19990415
  2. LANTUS [Concomitant]
     Route: 065
     Dates: start: 20080101
  3. VITAMIN D (UNSPECIFIED) [Concomitant]
     Route: 065
  4. FOSAMAX [Suspect]
     Route: 048
     Dates: start: 20000301, end: 20090901
  5. LOTRISONE [Concomitant]
     Route: 065
     Dates: start: 19961201
  6. GLUCOPHAGE [Concomitant]
     Route: 065
     Dates: start: 19910101
  7. FOSAMAX [Suspect]
     Indication: OSTEOPOROSIS
     Route: 048
     Dates: end: 20000301
  8. FOSAMAX [Suspect]
     Route: 048
     Dates: start: 20090911, end: 20110701
  9. ACTOS [Concomitant]
     Route: 065
     Dates: start: 19910101, end: 20110101
  10. SYNTHROID [Concomitant]
     Route: 065
     Dates: start: 19920101
  11. ACTONEL [Concomitant]
     Route: 065
     Dates: start: 20001117
  12. ACTONEL [Concomitant]
     Route: 048
     Dates: start: 20030301, end: 20090901
  13. CALCIUM (UNSPECIFIED) [Concomitant]
     Route: 065

REACTIONS (11)
  - EMOTIONAL DISTRESS [None]
  - FEMUR FRACTURE [None]
  - FRACTURE DELAYED UNION [None]
  - DEVICE FAILURE [None]
  - OSTEOARTHRITIS [None]
  - HYPERTENSION [None]
  - TOOTH DISORDER [None]
  - ARTHRITIS [None]
  - COMMINUTED FRACTURE [None]
  - OSTEOPENIA [None]
  - URINARY TRACT INFECTION [None]
